FAERS Safety Report 4348710-9 (Version None)
Quarter: 2004Q1

REPORT INFORMATION
  Report Type: 
  Country: None (occurrence: None)
  Receive Date: 20040325
  Receipt Date: 20040209
  Transmission Date: 20041129
  Serious: No
  Sender: FDA-Public Use
  Company Number: USA040157686

PATIENT
  Sex: Female

DRUGS (4)
  1. FORTEO [Suspect]
     Indication: COMPRESSION FRACTURE
     Dates: start: 20040120
  2. FORTEO [Suspect]
     Indication: STRESS FRACTURE
     Dates: start: 20040120
  3. METHOTREXATE [Concomitant]
  4. ENBREL [Concomitant]

REACTIONS (3)
  - BACK PAIN [None]
  - INJECTION SITE PAIN [None]
  - NAUSEA [None]
